FAERS Safety Report 6197765-8 (Version None)
Quarter: 2009Q2

REPORT INFORMATION
  Report Type: 
  Country: None (occurrence: None)
  Receive Date: 20090521
  Receipt Date: 20090513
  Transmission Date: 20091009
  Serious: Yes (Death, Life-Threatening, Hospitalization, Other)
  Sender: FDA-Public Use
  Company Number: GR-AMGEN-UK308373

PATIENT
  Age: 74 Year
  Sex: Female
  Weight: 61 kg

DRUGS (2)
  1. NEULASTA [Suspect]
     Indication: CHEMOTHERAPY
     Route: 065
     Dates: start: 20071203, end: 20080417
  2. ACENOCOUMAROL [Concomitant]

REACTIONS (1)
  - RESPIRATORY TRACT INFECTION [None]
